FAERS Safety Report 15338593 (Version 1)
Quarter: 2018Q3

REPORT INFORMATION
  Report Type: Other
  Country: US (occurrence: US)
  Receive Date: 20180831
  Receipt Date: 20180831
  Transmission Date: 20181010
  Serious: No
  Sender: FDA-Public Use
  Company Number: US-INTERCEPT-PMOCA2018001054

PATIENT

DRUGS (2)
  1. OCALIVA [Suspect]
     Active Substance: OBETICHOLIC ACID
     Indication: PRIMARY BILIARY CHOLANGITIS
     Dosage: 5 MG, QD
     Route: 048
     Dates: start: 20171120
  2. URSODIOL. [Concomitant]
     Active Substance: URSODIOL
     Dosage: 900 MG, BID
     Route: 048

REACTIONS (2)
  - Laboratory test abnormal [Unknown]
  - Hypotension [Unknown]
